FAERS Safety Report 9431058 (Version 2)
Quarter: 2013Q4

REPORT INFORMATION
  Report Type: Spontaneous
  Country: US (occurrence: US)
  Receive Date: 20130730
  Receipt Date: 20131125
  Transmission Date: 20140711
  Serious: Yes (Other)
  Sender: FDA-Public Use
  Company Number: US-PFIZER INC-2013219698

PATIENT
  Age: 58 Year
  Sex: Female

DRUGS (21)
  1. XELJANZ [Suspect]
     Indication: RHEUMATOID ARTHRITIS
     Dosage: 5 MG, 2X/DAY
     Route: 048
     Dates: start: 20130508, end: 20130622
  2. NORCO [Concomitant]
     Dosage: 5-325MG
  3. LESCOL [Concomitant]
     Dosage: 20 MG
  4. NORVASC [Concomitant]
     Dosage: 5 MG
  5. XYLOCAINE [Concomitant]
     Dosage: 5%
  6. ESZOPICLONE [Concomitant]
     Dosage: 3 MG
  7. ATARAX [Concomitant]
     Dosage: 25 MG
  8. COREG [Concomitant]
     Dosage: 12.5 MG
  9. ZEGERID [Concomitant]
     Dosage: UNK
     Route: 048
  10. DICLOFENAC POTASSIUM [Concomitant]
     Dosage: 25 MG
  11. FLONASE [Concomitant]
     Dosage: 50 UG/ACT
     Route: 045
  12. FOLVITE [Concomitant]
     Dosage: 1 MG
  13. PRILOSEC [Concomitant]
     Dosage: 20 MG
  14. CYMBALTA [Concomitant]
     Dosage: UNK
     Route: 048
  15. RESTASIS [Concomitant]
     Dosage: 0.05 %
     Route: 047
  16. NIASPAN [Concomitant]
     Indication: HYPERLIPIDAEMIA
     Dosage: UNK
     Route: 048
  17. SYMBICORT [Concomitant]
     Dosage: 80-4.5 MCG/ACT
     Route: 045
  18. EVENING PRIMROSE OIL [Concomitant]
     Dosage: UNK
     Route: 048
  19. VITAMIN D [Concomitant]
     Dosage: 1000 IU
  20. SENNOSIDES [Concomitant]
     Indication: LAXATIVE SUPPORTIVE CARE
     Dosage: UNK
     Route: 048
  21. ALBUTEROL [Concomitant]
     Dosage: 108 (90 BASE) MCG/ACT
     Route: 045

REACTIONS (1)
  - Epistaxis [Recovered/Resolved]
